FAERS Safety Report 7883313-0 (Version None)
Quarter: 2011Q4

REPORT INFORMATION
  Report Type: 
  Country: None (occurrence: None)
  Receive Date: 20111031
  Receipt Date: 20111017
  Transmission Date: 20120403
  Serious: Yes (Hospitalization)
  Sender: FDA-Public Use
  Company Number: FK201102285

PATIENT
  Age: 54 Year
  Sex: Male
  Weight: 75.7507 kg

DRUGS (3)
  1. DEXAMETHASONE SODIUM PHOSPHATE [Suspect]
     Indication: MULTIPLE MYELOMA
     Dosage: 20 MG, PER10ML, DAYS: 1, 4, 8, AND 11, INTRAVENOUS BOLUS
     Route: 040
     Dates: start: 20100401, end: 20100412
  2. ZOMETA [Suspect]
     Indication: MULTIPLE MYELOMA
     Dosage: 4 MG/ML, PER 5 ML, ONE TIME DOSE, INTRAVENOUS (NOT OTHERWISE SPECIFIED)
     Route: 042
     Dates: start: 20100401, end: 20100412
  3. VELCADE [Suspect]
     Indication: MULTIPLE MYELOMA
     Dosage: 2.43 MG/M2, DAYS: 1, 4, 8 AND 11, INTRAVENOUS BOLUS
     Route: 040
     Dates: start: 20100401, end: 20100412

REACTIONS (2)
  - LABORATORY TEST ABNORMAL [None]
  - HYPERKALAEMIA [None]
